FAERS Safety Report 9378499 (Version 60)
Quarter: 2018Q2

REPORT INFORMATION
  Report Type: Spontaneous
  Country: CA (occurrence: CA)
  Receive Date: 20130702
  Receipt Date: 20180614
  Transmission Date: 20180711
  Serious: Yes (Hospitalization, Other)
  Sender: FDA-Public Use
  Company Number: CA-ROCHE-1241492

PATIENT
  Age: 50 Year
  Sex: Female

DRUGS (27)
  1. XOLAIR [Suspect]
     Active Substance: OMALIZUMAB
     Route: 058
     Dates: start: 20150224
  2. XOLAIR [Suspect]
     Active Substance: OMALIZUMAB
     Route: 058
     Dates: start: 20180219
  3. SALBUTAMOL [Concomitant]
     Active Substance: ALBUTEROL
     Indication: ASTHMA
     Dosage: 2 DF, PRN
     Route: 065
  4. XOLAIR [Suspect]
     Active Substance: OMALIZUMAB
     Route: 058
     Dates: start: 20140124
  5. XOLAIR [Suspect]
     Active Substance: OMALIZUMAB
     Route: 058
     Dates: start: 20150325
  6. XOLAIR [Suspect]
     Active Substance: OMALIZUMAB
     Route: 058
     Dates: start: 20170905
  7. XOLAIR [Suspect]
     Active Substance: OMALIZUMAB
     Route: 058
     Dates: start: 201706
  8. XOLAIR [Suspect]
     Active Substance: OMALIZUMAB
     Route: 058
     Dates: start: 20180319
  9. ADVAIR HFA [Concomitant]
     Active Substance: FLUTICASONE PROPIONATE\SALMETEROL XINAFOATE
     Indication: PRODUCT USED FOR UNKNOWN INDICATION
     Dosage: UNK
     Route: 055
  10. XOLAIR [Suspect]
     Active Substance: OMALIZUMAB
     Indication: ASTHMA
     Route: 058
     Dates: start: 20121025
  11. XOLAIR [Suspect]
     Active Substance: OMALIZUMAB
     Route: 058
     Dates: start: 20150710
  12. XOLAIR [Suspect]
     Active Substance: OMALIZUMAB
     Route: 058
     Dates: start: 20171127
  13. VENTOLIN [Concomitant]
     Active Substance: ALBUTEROL SULFATE
     Indication: ASTHMA
     Dosage: UNK
     Route: 055
     Dates: start: 20160129
  14. XOLAIR [Suspect]
     Active Substance: OMALIZUMAB
     Route: 058
     Dates: start: 20150422
  15. XOLAIR [Suspect]
     Active Substance: OMALIZUMAB
     Route: 058
     Dates: start: 20160205
  16. XOLAIR [Suspect]
     Active Substance: OMALIZUMAB
     Route: 058
     Dates: start: 20131101
  17. XOLAIR [Suspect]
     Active Substance: OMALIZUMAB
     Route: 058
     Dates: start: 20160304
  18. SINGULAIR [Concomitant]
     Active Substance: MONTELUKAST SODIUM
     Indication: PRODUCT USED FOR UNKNOWN INDICATION
     Dosage: UNK
     Route: 065
  19. XOLAIR [Suspect]
     Active Substance: OMALIZUMAB
     Route: 058
     Dates: start: 20130927
  20. XOLAIR [Suspect]
     Active Substance: OMALIZUMAB
     Route: 058
     Dates: start: 20140502
  21. XOLAIR [Suspect]
     Active Substance: OMALIZUMAB
     Route: 058
     Dates: start: 20160304, end: 20160304
  22. XOLAIR [Suspect]
     Active Substance: OMALIZUMAB
     Route: 058
     Dates: start: 20140718
  23. SPIRIVA [Concomitant]
     Active Substance: TIOTROPIUM BROMIDE MONOHYDRATE
     Indication: PRODUCT USED FOR UNKNOWN INDICATION
     Dosage: 1 DF, QD
     Route: 065
  24. XOLAIR [Suspect]
     Active Substance: OMALIZUMAB
     Route: 058
     Dates: start: 20150807
  25. XOLAIR [Suspect]
     Active Substance: OMALIZUMAB
     Route: 058
     Dates: start: 20151120
  26. XOLAIR [Suspect]
     Active Substance: OMALIZUMAB
     Route: 058
     Dates: start: 20151224
  27. ATROVENT [Concomitant]
     Active Substance: IPRATROPIUM BROMIDE
     Indication: ASTHMA
     Dosage: UNK
     Route: 065

REACTIONS (43)
  - Chest pain [Recovered/Resolved]
  - Osteoporosis [Unknown]
  - Heart rate increased [Unknown]
  - Skin ulcer [Unknown]
  - Injection site pruritus [Recovering/Resolving]
  - Body temperature decreased [Unknown]
  - Stress [Unknown]
  - Peripheral swelling [Unknown]
  - Pain in extremity [Unknown]
  - Tachypnoea [Unknown]
  - Rhonchi [Unknown]
  - Spinal fracture [Unknown]
  - Middle insomnia [Recovering/Resolving]
  - Chest discomfort [Recovering/Resolving]
  - Dyspepsia [Unknown]
  - Dysmenorrhoea [Unknown]
  - Rhinitis [Recovering/Resolving]
  - Respiratory disorder [Unknown]
  - Influenza [Unknown]
  - Malaise [Unknown]
  - Gastrooesophageal reflux disease [Unknown]
  - Asthma [Recovering/Resolving]
  - Palpitations [Unknown]
  - Chest discomfort [Unknown]
  - Nasopharyngitis [Unknown]
  - Diabetes mellitus inadequate control [Unknown]
  - Blood pressure increased [Unknown]
  - Abdominal pain upper [Unknown]
  - Stress fracture [Unknown]
  - Staphylococcal infection [Recovering/Resolving]
  - Dizziness [Recovered/Resolved]
  - Dizziness postural [Unknown]
  - Somnolence [Unknown]
  - Infection [Unknown]
  - Pruritus [Recovering/Resolving]
  - Smoke sensitivity [Unknown]
  - Sleep apnoea syndrome [Unknown]
  - Musculoskeletal chest pain [Unknown]
  - Chills [Unknown]
  - Mitochondrial DNA mutation [Unknown]
  - Weight increased [Unknown]
  - Back pain [Unknown]
  - Influenza like illness [Unknown]

NARRATIVE: CASE EVENT DATE: 20121122
